FAERS Safety Report 6543741-2 (Version None)
Quarter: 2010Q1

REPORT INFORMATION
  Report Type: 
  Country: None (occurrence: None)
  Receive Date: 20100120
  Receipt Date: 20100112
  Transmission Date: 20100710
  Serious: Yes (Other)
  Sender: FDA-Public Use
  Company Number: BR-ABBOTT-10P-020-0618767-00

PATIENT
  Age: 21 Year
  Sex: Male
  Weight: 50 kg

DRUGS (3)
  1. VALPAKINE [Suspect]
     Indication: EPILEPSY
     Route: 048
     Dates: start: 20091201
  2. GARDENAL [Concomitant]
     Indication: EPILEPSY
  3. CARBAMAZEPINE [Concomitant]
     Indication: EPILEPSY

REACTIONS (2)
  - DECREASED APPETITE [None]
  - WEIGHT DECREASED [None]
